FAERS Safety Report 7242061-0 (Version None)
Quarter: 2011Q1

REPORT INFORMATION
  Report Type: 
  Country: None (occurrence: None)
  Receive Date: 20110124
  Receipt Date: 20110119
  Transmission Date: 20110831
  Serious: Yes (Other)
  Sender: FDA-Public Use
  Company Number: JP-PFIZER INC-2011013369

PATIENT
  Sex: Male

DRUGS (2)
  1. TAFLUPROST [Concomitant]
  2. VIAGRA [Suspect]
     Indication: ERECTILE DYSFUNCTION

REACTIONS (1)
  - GLAUCOMA [None]
